FAERS Safety Report 5637771-2 (Version None)
Quarter: 2008Q1

REPORT INFORMATION
  Report Type: 
  Country: None (occurrence: None)
  Receive Date: 20080219
  Receipt Date: 20080211
  Transmission Date: 20080703
  Serious: Yes (Other)
  Sender: FDA-Public Use
  Company Number: OPER20080022

PATIENT

DRUGS (1)
  1. OPANA ER [Suspect]
     Dosage: 10 MG

REACTIONS (1)
  - ARRHYTHMIA [None]
